FAERS Safety Report 7491943-3 (Version None)
Quarter: 2011Q2

REPORT INFORMATION
  Report Type: 
  Country: None (occurrence: None)
  Receive Date: 20110511
  Receipt Date: 20110427
  Transmission Date: 20111010
  Serious: Yes (Hospitalization)
  Sender: FDA-Public Use
  Company Number: 2011SP019360

PATIENT
  Age: 56 Year
  Sex: Female

DRUGS (2)
  1. ASMANEX TWISTHALER [Suspect]
     Indication: ASTHMA
     Dosage: 220 MCG;QPM;INH
     Route: 055
     Dates: end: 20100501
  2. ASMANEX TWISTHALER [Suspect]
     Indication: ASTHMA
     Dosage: 220 MCG;QPM;INH
     Route: 055
     Dates: start: 20100701

REACTIONS (2)
  - EYE PAIN [None]
  - PULMONARY EMBOLISM [None]
